FAERS Safety Report 12371384 (Version 3)
Quarter: 2016Q2

REPORT INFORMATION
  Report Type: Spontaneous
  Country: US (occurrence: US)
  Receive Date: 20160516
  Receipt Date: 20160615
  Transmission Date: 20160815
  Serious: Yes (Death, Hospitalization, Other)
  Sender: FDA-Public Use
  Company Number: US-CELGENEUS-USA-2016051036

PATIENT
  Age: 84 Year
  Sex: Male

DRUGS (1)
  1. REVLIMID [Suspect]
     Active Substance: LENALIDOMIDE
     Indication: MYELODYSPLASTIC SYNDROME
     Dosage: 15 MILLIGRAM
     Route: 048
     Dates: start: 201601, end: 201602

REACTIONS (9)
  - Abasia [Unknown]
  - Asthenia [Unknown]
  - Abdominal pain [Unknown]
  - Lung infection [Unknown]
  - Death [Fatal]
  - Eye infection [Unknown]
  - Nausea [Unknown]
  - Splenomegaly [Unknown]
  - Night sweats [Unknown]

NARRATIVE: CASE EVENT DATE: 201601
